FAERS Safety Report 7925110-3 (Version None)
Quarter: 2011Q4

REPORT INFORMATION
  Report Type: 
  Country: None (occurrence: None)
  Receive Date: 20111118
  Receipt Date: 20111107
  Transmission Date: 20120403
  Serious: Yes (Life-Threatening, Hospitalization)
  Sender: FDA-Public Use
  Company Number: US-ROCHE-384097

PATIENT
  Sex: Female
  Weight: 68 kg

DRUGS (7)
  1. CYCLOPHOSPHAMIDE [Suspect]
     Indication: BREAST CANCER
     Route: 042
  2. HERCEPTIN [Suspect]
     Indication: BREAST CANCER
     Dosage: LOADING DOSE
     Route: 042
     Dates: start: 20030919, end: 20030919
  3. LOVENOX [Concomitant]
  4. PACLITAXEL [Suspect]
     Indication: BREAST CANCER
     Route: 042
  5. HERCEPTIN [Suspect]
     Route: 042
  6. DOXORUBICIN HCL [Suspect]
     Indication: BREAST CANCER
     Route: 042
  7. TAMOXIFEN CITRATE [Suspect]
     Indication: BREAST CANCER
     Route: 048

REACTIONS (3)
  - EMBOLISM [None]
  - NON-CARDIAC CHEST PAIN [None]
  - DYSPNOEA [None]
